FAERS Safety Report 8620248-X (Version None)
Quarter: 2012Q3

REPORT INFORMATION
  Report Type: 
  Country: None (occurrence: None)
  Receive Date: 20120824
  Receipt Date: 20120820
  Transmission Date: 20120928
  Serious: Yes (Death)
  Sender: FDA-Public Use
  Company Number: IT-GILEAD-2012-0060152

PATIENT

DRUGS (1)
  1. VISTIDE [Suspect]
     Indication: ADENOVIRUS INFECTION

REACTIONS (1)
  - DRUG INEFFECTIVE FOR UNAPPROVED INDICATION [None]
